FAERS Safety Report 7971953-X (Version None)
Quarter: 2011Q4

REPORT INFORMATION
  Report Type: 
  Country: None (occurrence: None)
  Receive Date: 20111212
  Receipt Date: 20110803
  Transmission Date: 20120403
  Serious: No
  Sender: FDA-Public Use
  Company Number: US-BAYER-2011-085889

PATIENT
  Age: 81 Year
  Sex: Female
  Weight: 45 kg

DRUGS (7)
  1. CITRACAL PLUS [Suspect]
     Dosage: 1 DF, QD
     Route: 048
     Dates: start: 20110601
  2. ALEVE (CAPLET) [Suspect]
     Dosage: 1 DF, QD
     Route: 048
  3. CITRACAL PLUS [Suspect]
     Dosage: UNK
     Dates: start: 20000101
  4. VITAMIN D [Concomitant]
  5. EVISTA [Concomitant]
  6. MULTI-VITAMIN [Concomitant]
  7. LOTREL [Concomitant]

REACTIONS (1)
  - FLATULENCE [None]
